FAERS Safety Report 9907933 (Version 1)
Quarter: 2014Q1

REPORT INFORMATION
  Report Type: Spontaneous
  Country: US (occurrence: US)
  Receive Date: 20140219
  Receipt Date: 20140219
  Transmission Date: 20141002
  Serious: No
  Sender: FDA-Public Use
  Company Number: US-BIOGENIDEC-2014BI015875

PATIENT
  Sex: Female
  Weight: 77 kg

DRUGS (8)
  1. TECFIDERA [Suspect]
     Indication: MULTIPLE SCLEROSIS
  2. AVONEX [Concomitant]
     Indication: MULTIPLE SCLEROSIS
     Route: 030
  3. AVONEX [Concomitant]
     Indication: MULTIPLE SCLEROSIS
     Route: 030
     Dates: start: 20020501, end: 20130603
  4. LORAZEPAM [Concomitant]
     Route: 048
  5. TEMAZEPAM [Concomitant]
     Route: 048
  6. NAPROXEN SODIUM [Concomitant]
  7. TOPIRAMATE [Concomitant]
     Route: 048
  8. SEROQUEL [Concomitant]
     Route: 048

REACTIONS (2)
  - Adverse event [Unknown]
  - Headache [Not Recovered/Not Resolved]
